FAERS Safety Report 21006187 (Version 1)
Quarter: 2022Q2

REPORT INFORMATION
  Report Type: Spontaneous
  Country: US (occurrence: US)
  Receive Date: 20220624
  Receipt Date: 20220624
  Transmission Date: 20220721
  Serious: Yes (Hospitalization, Other)
  Sender: FDA-Public Use
  Company Number: US-IBSA PHARMA INC.-2022IBS000194

PATIENT

DRUGS (3)
  1. LEVOTHYROXINE SODIUM [Suspect]
     Active Substance: LEVOTHYROXINE SODIUM
     Indication: Hypothyroidism
     Dosage: 200 MICROGRAM, QD
  2. PEMBROLIZUMAB [Suspect]
     Active Substance: PEMBROLIZUMAB
     Indication: Malignant melanoma
     Dosage: UNK
  3. AXITINIB [Concomitant]
     Active Substance: AXITINIB
     Indication: Product used for unknown indication

REACTIONS (2)
  - Overdose [Unknown]
  - Secondary adrenocortical insufficiency [Unknown]
